FAERS Safety Report 12502001 (Version 2)
Quarter: 2016Q4

REPORT INFORMATION
  Report Type: Report from Study
  Country: None (occurrence: DE)
  Receive Date: 20160627
  Receipt Date: 20161025
  Transmission Date: 20170207
  Serious: Yes (Hospitalization, Other)
  Sender: FDA-Public Use
  Company Number: DE-ABBVIE-16K-062-1658766-00

PATIENT
  Age: 48 Year
  Sex: Female
  Weight: 65 kg

DRUGS (6)
  1. IBUPROFEN. [Concomitant]
     Active Substance: IBUPROFEN
     Indication: PRODUCT USED FOR UNKNOWN INDICATION
     Dosage: 3X1 AS NEEDED
  2. TRAMAL [Concomitant]
     Active Substance: TRAMADOL
     Indication: PRODUCT USED FOR UNKNOWN INDICATION
     Dosage: 20 DROPS ONCE AS NEEDED
  3. HUMIRA [Suspect]
     Active Substance: ADALIMUMAB
     Indication: ANKYLOSING SPONDYLITIS
     Route: 058
     Dates: start: 20120323, end: 20160510
  4. NOVAMIN [Concomitant]
     Active Substance: PROCHLORPERAZINE MALEATE
     Indication: PRODUCT USED FOR UNKNOWN INDICATION
     Dosage: ONCE AS NEEDED
  5. METOPROLOL. [Concomitant]
     Active Substance: METOPROLOL
     Indication: PRODUCT USED FOR UNKNOWN INDICATION
  6. ISOZID [Concomitant]
     Active Substance: ISONIAZID
     Indication: PRODUCT USED FOR UNKNOWN INDICATION

REACTIONS (8)
  - Colitis [Unknown]
  - Pseudomembranous colitis [Unknown]
  - Erythema [Unknown]
  - Latent tuberculosis [Not Recovered/Not Resolved]
  - Anal haemorrhage [Unknown]
  - Decreased bronchial secretion [Unknown]
  - Hepatic cyst [Unknown]
  - Bronchospasm [Unknown]

NARRATIVE: CASE EVENT DATE: 201203
